FAERS Safety Report 6015092-6 (Version None)
Quarter: 2008Q4

REPORT INFORMATION
  Report Type: 
  Country: None (occurrence: None)
  Receive Date: 20081222
  Receipt Date: 20081208
  Transmission Date: 20090506
  Serious: Yes (Other)
  Sender: FDA-Public Use
  Company Number: US-JNJFOC-20081005559

PATIENT
  Sex: Female
  Weight: 58.97 kg

DRUGS (9)
  1. REMICADE [Suspect]
     Dosage: FOR 3 YEARS
     Route: 042
  2. REMICADE [Suspect]
     Indication: CROHN'S DISEASE
     Dosage: FOR 3 YEARS
     Route: 042
  3. ZELNORM [Concomitant]
  4. PENTASA [Concomitant]
     Dosage: FOR 7 YEARS
  5. PREVACID [Concomitant]
  6. METFORMIN HCL [Concomitant]
     Route: 048
  7. LEXAPRO [Concomitant]
     Route: 048
  8. VALTREX [Concomitant]
     Route: 048
  9. HYDROCODONE BITARTRATE [Concomitant]

REACTIONS (18)
  - ABDOMINAL DISTENSION [None]
  - ABDOMINAL PAIN [None]
  - BURSITIS [None]
  - CELLULITIS [None]
  - CHEST PAIN [None]
  - EXPLORATORY OPERATION [None]
  - FALL [None]
  - HEPATITIS C [None]
  - HERPES ZOSTER [None]
  - INFECTION [None]
  - INTESTINAL OBSTRUCTION [None]
  - MITRAL VALVE INCOMPETENCE [None]
  - OTITIS MEDIA [None]
  - PHARYNGITIS [None]
  - RESPIRATORY FAILURE [None]
  - SINUSITIS [None]
  - TRICUSPID VALVE INCOMPETENCE [None]
  - UPPER RESPIRATORY TRACT INFECTION [None]
